FAERS Safety Report 7103765-3 (Version None)
Quarter: 2010Q4

REPORT INFORMATION
  Report Type: 
  Country: None (occurrence: None)
  Receive Date: 20101115
  Receipt Date: 20101104
  Transmission Date: 20110411
  Serious: Yes (Hospitalization, Other)
  Sender: FDA-Public Use
  Company Number: DE-ROCHE-653473

PATIENT
  Sex: Female
  Weight: 62 kg

DRUGS (9)
  1. TRASTUZUMAB [Suspect]
     Dosage: DOSE LEVEL: 8 MG/KG, FORMULATION: VIAL, TEMPORARILY HELD
     Route: 042
     Dates: start: 20090820, end: 20090924
  2. TRASTUZUMAB [Suspect]
     Route: 042
     Dates: start: 20091203
  3. BEVACIZUMAB [Suspect]
     Dosage: DOSE LEVEL: 15 MG/KG, FORMULATION: VIAL, TEMPORARILY HELD
     Route: 042
     Dates: start: 20090820, end: 20090924
  4. DOCETAXEL [Suspect]
     Dosage: DOSE LEVEL: 100 MG/M2, FORMULATION: VIAL, PERMANENTLY STOPPED
     Route: 042
     Dates: start: 20090820, end: 20090924
  5. EUTHYROX [Concomitant]
     Dates: start: 19700101
  6. DIOVAN [Concomitant]
  7. SORTIS [Concomitant]
  8. HCT [Concomitant]
  9. CONCOR [Concomitant]

REACTIONS (5)
  - CARDIAC DISORDER [None]
  - FATIGUE [None]
  - LEUKOPENIA [None]
  - STOMATITIS [None]
  - VOMITING [None]
